FAERS Safety Report 6052325-4 (Version None)
Quarter: 2009Q1

REPORT INFORMATION
  Report Type: 
  Country: None (occurrence: None)
  Receive Date: 20090126
  Receipt Date: 20090113
  Transmission Date: 20090719
  Serious: Yes (Other)
  Sender: FDA-Public Use
  Company Number: CN-GILEAD-E2B_00000269

PATIENT
  Age: 17 Year
  Sex: Female

DRUGS (1)
  1. HEPSERA [Suspect]
     Indication: HEPATITIS B
     Dosage: 10MG PER DAY
     Route: 048
     Dates: start: 20050101

REACTIONS (5)
  - ANAEMIA [None]
  - ERYTHROPENIA [None]
  - HYPOCHROMASIA [None]
  - LEUKOPENIA [None]
  - MENSTRUAL DISORDER [None]
